FAERS Safety Report 9466881 (Version 2)
Quarter: 2013Q3

REPORT INFORMATION
  Report Type: Report from Study
  Country: US (occurrence: US)
  Receive Date: 20130820
  Receipt Date: 20130820
  Transmission Date: 20140515
  Serious: Yes (Other)
  Sender: FDA-Public Use
  Company Number: US-ROCHE-1262462

PATIENT
  Age: 50 Year
  Sex: Male

DRUGS (1)
  1. LUCENTIS [Suspect]
     Indication: RETINAL VEIN OCCLUSION
     Route: 042
     Dates: start: 20110603, end: 20130407

REACTIONS (2)
  - Photopsia [Recovered/Resolved]
  - Ocular hyperaemia [Unknown]
